FAERS Safety Report 7722288-1 (Version None)
Quarter: 2011Q3

REPORT INFORMATION
  Report Type: 
  Country: None (occurrence: None)
  Receive Date: 20110831
  Receipt Date: 20110823
  Transmission Date: 20111222
  Serious: Yes (Hospitalization, Other)
  Sender: FDA-Public Use
  Company Number: JP-CEPHALON-2011001243

PATIENT
  Sex: Male
  Weight: 60 kg

DRUGS (6)
  1. TREANDA [Suspect]
     Indication: B-CELL LYMPHOMA
     Route: 041
     Dates: start: 20110224, end: 20110224
  2. SULFAMETHOXAZOLE AND TRIMETHOPRIM [Concomitant]
  3. LANSOPRAZOLE [Concomitant]
  4. URSODIOL [Concomitant]
  5. RITUXIMAB [Concomitant]
     Dates: start: 20110223, end: 20110223
  6. GRANISETRON HYDROCHLORIDE [Concomitant]
     Dates: end: 20110225

REACTIONS (6)
  - CYTOMEGALOVIRUS ENTEROCOLITIS [None]
  - PSEUDOMEMBRANOUS COLITIS [None]
  - C-REACTIVE PROTEIN INCREASED [None]
  - VASCULITIS [None]
  - LYMPHOCYTE COUNT DECREASED [None]
  - PLATELET COUNT DECREASED [None]
